FAERS Safety Report 7967711-2 (Version None)
Quarter: 2011Q4

REPORT INFORMATION
  Report Type: 
  Country: None (occurrence: None)
  Receive Date: 20111209
  Receipt Date: 20111129
  Transmission Date: 20120403
  Serious: Yes (Hospitalization, Disabling, Other)
  Sender: FDA-Public Use
  Company Number: GB-SANOFI-AVENTIS-2011SA076674

PATIENT
  Age: 60 Year
  Sex: Female
  Weight: 99.79 kg

DRUGS (9)
  1. ASPIRIN [Concomitant]
  2. SITAGLIPTIN PHOSPHATE [Concomitant]
  3. METFORMIN HCL [Concomitant]
  4. LANTUS [Suspect]
     Indication: TYPE 2 DIABETES MELLITUS
     Dosage: DOSE:80 UNIT(S)
     Route: 058
     Dates: start: 20110501
  5. SOLOSTAR [Suspect]
     Indication: DEVICE THERAPY
     Dates: start: 20110501
  6. INDAPAMIDE [Concomitant]
  7. APIDRA [Suspect]
     Indication: TYPE 2 DIABETES MELLITUS
     Route: 058
     Dates: start: 20110501
  8. EZETIMIBE [Concomitant]
  9. LOSARTAN POTASSIUM [Concomitant]

REACTIONS (4)
  - EYE INFLAMMATION [None]
  - DRUG ADMINISTRATION ERROR [None]
  - PRURITUS [None]
  - CONDITION AGGRAVATED [None]
